FAERS Safety Report 19469130 (Version 1)
Quarter: 2021Q2

REPORT INFORMATION
  Report Type: Spontaneous
  Country: ES (occurrence: ES)
  Receive Date: 20210628
  Receipt Date: 20210628
  Transmission Date: 20210717
  Serious: Yes (Other)
  Sender: FDA-Public Use
  Company Number: ES-VER-202100042

PATIENT
  Sex: Male

DRUGS (2)
  1. BICALUTAMIDE CINFA [Concomitant]
     Indication: ANTIANDROGEN THERAPY
     Dosage: INDICATED 50MG A DAY. 30 TABLETS.
     Route: 065
  2. TRIPTORELIN PAMOATE [Suspect]
     Active Substance: TRIPTORELIN PAMOATE
     Indication: PROSTATE CANCER
     Route: 065

REACTIONS (2)
  - Gynaecomastia [Unknown]
  - Dementia [Unknown]
